FAERS Safety Report 20038158 (Version 2)
Quarter: 2021Q4

REPORT INFORMATION
  Report Type: Report from Study
  Country: DE (occurrence: DE)
  Receive Date: 20211105
  Receipt Date: 20211108
  Transmission Date: 20220303
  Serious: Yes (Hospitalization, Other)
  Sender: FDA-Public Use
  Company Number: DE-EXELIXIS-XL18421037172

PATIENT

DRUGS (24)
  1. CABOZANTINIB [Suspect]
     Active Substance: CABOZANTINIB
     Indication: Adrenocortical carcinoma
     Dosage: 60 MG, QD
     Route: 048
     Dates: start: 20200903, end: 20200910
  2. CABOZANTINIB [Suspect]
     Active Substance: CABOZANTINIB
     Dosage: 60 MG, QD
     Route: 048
     Dates: start: 20200918, end: 20201015
  3. CABOZANTINIB [Suspect]
     Active Substance: CABOZANTINIB
     Dosage: 60 MG, QD
     Route: 048
     Dates: start: 20201026
  4. CABOZANTINIB [Suspect]
     Active Substance: CABOZANTINIB
     Dosage: 40 MG
     Route: 048
     Dates: end: 20201121
  5. METOPROLOL [Concomitant]
     Active Substance: METOPROLOL
     Indication: Hypertension
  6. VALSARTAN [Concomitant]
     Active Substance: VALSARTAN
     Indication: Hypertension
  7. PANTOPRAZOLE [Concomitant]
     Active Substance: PANTOPRAZOLE
     Indication: Prophylaxis
  8. PRAMIPEXOLE [Concomitant]
     Active Substance: PRAMIPEXOLE
     Indication: Depression
  9. AMITRIPTYLINE [Concomitant]
     Active Substance: AMITRIPTYLINE
     Indication: Depression
  10. VENLAFAXINE [Concomitant]
     Active Substance: VENLAFAXINE HYDROCHLORIDE
     Indication: Depression
  11. DICLOFENAC [Concomitant]
     Active Substance: DICLOFENAC
     Indication: Pain
  12. HYDROCORTISONE [Concomitant]
     Active Substance: HYDROCORTISONE
     Indication: Adrenal insufficiency
  13. LEVOTHYROXINE SODIUM [Concomitant]
     Active Substance: LEVOTHYROXINE SODIUM
     Indication: Hypothyroidism
  14. ZOLEDRONIC ACID [Concomitant]
     Active Substance: ZOLEDRONIC ACID
     Indication: Metastases to bone
  15. FENTANYL TRANSDERMAL SYSTEM [Concomitant]
     Active Substance: FENTANYL
     Indication: Bone pain
  16. LACTULOSE [Concomitant]
     Active Substance: LACTULOSE
     Indication: Constipation
  17. POLYETHYLENE GLYCOLS [Concomitant]
     Active Substance: POLYETHYLENE GLYCOLS
     Indication: Constipation
  18. ONDANSETRON [Concomitant]
     Active Substance: ONDANSETRON
     Indication: Nausea
  19. KALIUM HYDROGEN PHOSPHATE/NATRIUMMONOHYDROGENPHOSPHAT-DIHYDRATE [Concomitant]
     Indication: Hypophosphataemia
  20. METAMIZOL [Concomitant]
     Active Substance: METAMIZOLE SODIUM
     Indication: Bone pain
  21. HYDROMORPHONE [Concomitant]
     Active Substance: HYDROMORPHONE
     Indication: Bone pain
  22. MOXONIDINE [Concomitant]
     Active Substance: MOXONIDINE
     Indication: Hypertension
  23. AMLODIPINE BESYLATE [Concomitant]
     Active Substance: AMLODIPINE BESYLATE
     Indication: Hypertension
  24. FOSFOMYCIN [Concomitant]
     Active Substance: FOSFOMYCIN
     Indication: Urinary tract infection

REACTIONS (14)
  - Urinary retention [Recovered/Resolved]
  - Abdominal pain upper [Recovered/Resolved]
  - Vomiting [Recovered/Resolved]
  - Bone pain [Not Recovered/Not Resolved]
  - Malaise [Recovered/Resolved]
  - Bone pain [Recovered/Resolved]
  - Vomiting [Recovered/Resolved]
  - Hypertension [Recovered/Resolved]
  - Urinary tract infection [Recovered/Resolved]
  - Nausea [Not Recovered/Not Resolved]
  - Stomatitis [Recovered/Resolved]
  - Micturition disorder [Recovered/Resolved]
  - Hypokalaemia [Recovered/Resolved]
  - Vertigo [Not Recovered/Not Resolved]

NARRATIVE: CASE EVENT DATE: 20200908
